FAERS Safety Report 9872965 (Version 2)
Quarter: 2014Q1

REPORT INFORMATION
  Report Type: Spontaneous
  Country: US (occurrence: US)
  Receive Date: 20140206
  Receipt Date: 20140206
  Transmission Date: 20141002
  Serious: No
  Sender: FDA-Public Use
  Company Number: US-ACORDA-ACO_30152_2012

PATIENT
  Age: 57 Year
  Sex: Male
  Weight: 91.61 kg

DRUGS (4)
  1. AMPYRA [Suspect]
     Indication: GAIT SPASTIC
     Dosage: 10 MG, Q 12 HRS
     Route: 048
     Dates: start: 20110422, end: 20110518
  2. INTERFERON BETA-1A [Concomitant]
     Indication: SECONDARY PROGRESSIVE MULTIPLE SCLEROSIS
     Dosage: 44 ?G, 3 TIMES WEEKLY
     Route: 058
  3. CARBAMAZEPINE [Concomitant]
     Indication: TRIGEMINAL NEURALGIA
     Dosage: 200 MG, QD
     Route: 048
  4. GABAPENTIN [Concomitant]
     Indication: TRIGEMINAL NEURALGIA
     Dosage: 300 MG, BID
     Route: 048

REACTIONS (2)
  - Trigeminal neuralgia [Recovered/Resolved]
  - Drug ineffective [None]
